FAERS Safety Report 22687098 (Version 2)
Quarter: 2023Q4

REPORT INFORMATION
  Report Type: Report from Study
  Country: US (occurrence: US)
  Receive Date: 20230710
  Receipt Date: 20231016
  Transmission Date: 20240110
  Serious: Yes (Other)
  Sender: FDA-Public Use
  Company Number: US-ABBVIE-5318401

PATIENT
  Sex: Male

DRUGS (3)
  1. SKYRIZI [Suspect]
     Active Substance: RISANKIZUMAB-RZAA
     Indication: Psoriasis
     Dosage: TIME INTERVAL: TOTAL: DOSAGE: 150 MG/ML FORM STRENGTH WAS 150 MILLIGRAM?WEEK 0
     Route: 058
     Dates: start: 20221206, end: 20221206
  2. SKYRIZI [Suspect]
     Active Substance: RISANKIZUMAB-RZAA
     Dosage: TIME INTERVAL: TOTAL: DOSAGE: 150 MG/ML FORM STRENGTH WAS 150 MILLIGRAM?WEEK 4
     Route: 058
     Dates: start: 20230703, end: 20230703
  3. SKYRIZI [Suspect]
     Active Substance: RISANKIZUMAB-RZAA
     Dosage: DOSAGE: 150 MG/ML FORM STRENGTH WAS 150 MILLIGRAM
     Route: 058
     Dates: start: 202309, end: 202309

REACTIONS (7)
  - Muscle rupture [Recovering/Resolving]
  - Erythema [Not Recovered/Not Resolved]
  - Accident at work [Unknown]
  - Skin fissures [Unknown]
  - Pruritus [Not Recovered/Not Resolved]
  - Pain [Not Recovered/Not Resolved]
  - Drug ineffective [Unknown]
